FAERS Safety Report 6034424-6 (Version None)
Quarter: 2009Q1

REPORT INFORMATION
  Report Type: 
  Country: None (occurrence: None)
  Receive Date: 20090112
  Receipt Date: 20090108
  Transmission Date: 20090719
  Serious: Yes (Life-Threatening)
  Sender: FDA-Public Use
  Company Number: B0541647A

PATIENT
  Age: 73 Year
  Sex: Male
  Weight: 75 kg

DRUGS (4)
  1. SUPACEF [Suspect]
     Dosage: 750MG PER DAY
     Route: 042
     Dates: start: 20081005, end: 20081007
  2. CEFUROXIME AXETIL [Concomitant]
     Dosage: 250MG TWICE PER DAY
     Route: 048
     Dates: start: 20081003, end: 20081005
  3. OFLOXACIN [Concomitant]
     Dosage: 400MG PER DAY
     Route: 065
     Dates: start: 20081005, end: 20081011
  4. UNKNOWN SYRUP [Concomitant]
     Dosage: 200MG PER DAY
     Route: 065
     Dates: start: 20081005, end: 20081007

REACTIONS (14)
  - BRONCHOSPASM [None]
  - CHOKING SENSATION [None]
  - DERMATITIS CONTACT [None]
  - DYSPNOEA [None]
  - FACE OEDEMA [None]
  - FLUSHING [None]
  - HYPERHIDROSIS [None]
  - LARYNGEAL OEDEMA [None]
  - OCULAR HYPERAEMIA [None]
  - PYREXIA [None]
  - RASH [None]
  - RESPIRATORY DISTRESS [None]
  - SNEEZING [None]
  - WHEEZING [None]
